FAERS Safety Report 13831257 (Version 2)
Quarter: 2017Q3

REPORT INFORMATION
  Report Type: Report from Study
  Country: US (occurrence: US)
  Receive Date: 20170803
  Receipt Date: 20170817
  Transmission Date: 20171127
  Serious: Yes (Hospitalization)
  Sender: FDA-Public Use
  Company Number: US-EISAI MEDICAL RESEARCH-EC-2017-025344

PATIENT
  Age: 63 Year
  Sex: Male
  Weight: 124 kg

DRUGS (4)
  1. LENVIMA [Suspect]
     Active Substance: LENVATINIB
     Route: 048
     Dates: start: 201703, end: 20170412
  2. LENVIMA [Suspect]
     Active Substance: LENVATINIB
     Route: 048
     Dates: start: 20170413, end: 201705
  3. LENVIMA [Suspect]
     Active Substance: LENVATINIB
     Indication: THYROID CANCER
     Route: 048
     Dates: start: 20170218, end: 201703
  4. LENVIMA [Suspect]
     Active Substance: LENVATINIB
     Route: 048
     Dates: start: 2017, end: 20170701

REACTIONS (8)
  - Stomatitis [Not Recovered/Not Resolved]
  - Pancreatitis acute [Recovered/Resolved]
  - Pain in extremity [Not Recovered/Not Resolved]
  - Blood pressure increased [Recovering/Resolving]
  - Breast mass [Not Recovered/Not Resolved]
  - Skin ulcer [Recovered/Resolved]
  - Rash [Recovered/Resolved]
  - Pain in extremity [Recovered/Resolved]

NARRATIVE: CASE EVENT DATE: 201702
